FAERS Safety Report 17422229 (Version 4)
Quarter: 2021Q1

REPORT INFORMATION
  Report Type: Report from Study
  Country: US (occurrence: US)
  Receive Date: 20200214
  Receipt Date: 20210122
  Transmission Date: 20210419
  Serious: Yes (Hospitalization, Other)
  Sender: FDA-Public Use
  Company Number: NVSC2020US034376

PATIENT
  Sex: Male

DRUGS (3)
  1. ENTRESTO [Suspect]
     Active Substance: SACUBITRIL\VALSARTAN
     Route: 048
  2. ENTRESTO [Suspect]
     Active Substance: SACUBITRIL\VALSARTAN
     Route: 048
  3. ENTRESTO [Suspect]
     Active Substance: SACUBITRIL\VALSARTAN
     Indication: PRODUCT USED FOR UNKNOWN INDICATION
     Dosage: 1 DF, BID 100 MG (49 MG OF SACUBITRIL, 51 MG OF VALSARTAN)
     Route: 048
     Dates: start: 201911

REACTIONS (10)
  - Fracture [Unknown]
  - Swelling [Recovering/Resolving]
  - Cough [Recovering/Resolving]
  - Thyroid function test abnormal [Unknown]
  - Fall [Unknown]
  - Hypotension [Unknown]
  - Weight decreased [Recovering/Resolving]
  - Back injury [Unknown]
  - Heart rate irregular [Recovering/Resolving]
  - Thyroid hormones decreased [Unknown]
